FAERS Safety Report 4555757-6 (Version None)
Quarter: 2005Q1

REPORT INFORMATION
  Report Type: 
  Country: None (occurrence: None)
  Receive Date: 20050119
  Receipt Date: 20050111
  Transmission Date: 20050727
  Serious: Yes (Other)
  Sender: FDA-Public Use
  Company Number: 200510298GDDC

PATIENT
  Age: 38 Year
  Sex: Female
  Weight: 69.85 kg

DRUGS (4)
  1. GAVISCON [Suspect]
     Indication: GASTROOESOPHAGEAL REFLUX DISEASE
     Dosage: DOSE: UNK
     Route: 048
     Dates: start: 20010101
  2. FEXOFENADINE HYDROCHLORIDE [Concomitant]
     Dosage: DOSE: UNK
  3. MOMETASONE FUROATE [Concomitant]
     Dosage: DOSE: UNK
  4. MEDROXYPROGESTERONE ACETATE [Concomitant]
     Dosage: DOSE: UNK

REACTIONS (8)
  - BLOOD GLUCOSE INCREASED [None]
  - DIABETES MELLITUS [None]
  - DIABETES MELLITUS NON-INSULIN-DEPENDENT [None]
  - FATIGUE [None]
  - LUNG INFECTION [None]
  - RASH [None]
  - SOMNOLENCE [None]
  - WEIGHT INCREASED [None]
